FAERS Safety Report 21357426 (Version 2)
Quarter: 2022Q3

REPORT INFORMATION
  Report Type: Report from Study
  Country: IN (occurrence: IN)
  Receive Date: 20220921
  Receipt Date: 20220926
  Transmission Date: 20221026
  Serious: Yes (Hospitalization, Other)
  Sender: FDA-Public Use
  Company Number: IN-NOVARTISPH-NVSC2022IN211740

PATIENT
  Age: 29 Year
  Sex: Male

DRUGS (6)
  1. SIMULECT [Suspect]
     Active Substance: BASILIXIMAB
     Indication: Renal transplant
     Dosage: 20 MG
     Route: 065
     Dates: start: 20220819, end: 20220823
  2. SIMULECT [Suspect]
     Active Substance: BASILIXIMAB
     Dosage: 20 MG
     Route: 065
     Dates: start: 20220823
  3. TRIAMCINOLONE ACETONIDE [Concomitant]
     Active Substance: TRIAMCINOLONE ACETONIDE
     Indication: Product used for unknown indication
     Dosage: UNK
     Route: 065
  4. MYCOPHENOLATE MOFETIL [Concomitant]
     Active Substance: MYCOPHENOLATE MOFETIL
     Indication: Product used for unknown indication
     Dosage: UNK
     Route: 065
  5. VALGANCICLOVIR HYDROCHLORIDE [Concomitant]
     Active Substance: VALGANCICLOVIR HYDROCHLORIDE
     Indication: Product used for unknown indication
     Dosage: UNK
     Route: 065
  6. RANITIDINE HYDROCHLORIDE [Concomitant]
     Active Substance: RANITIDINE HYDROCHLORIDE
     Indication: Product used for unknown indication
     Dosage: UNK
     Route: 065

REACTIONS (11)
  - Complications of transplanted kidney [Unknown]
  - Pneumococcal infection [Unknown]
  - IgA nephropathy [Unknown]
  - Transplant dysfunction [Unknown]
  - Transplant rejection [Unknown]
  - Kidney transplant rejection [Unknown]
  - Hypertension [Unknown]
  - Transplantation complication [Unknown]
  - Cytomegalovirus test positive [Unknown]
  - Varicella zoster virus infection [Unknown]
  - Polyuria [Unknown]

NARRATIVE: CASE EVENT DATE: 20220908
